FAERS Safety Report 14483282 (Version 1)
Quarter: 2018Q1

REPORT INFORMATION
  Report Type: Spontaneous
  Country: US (occurrence: US)
  Receive Date: 20180204
  Receipt Date: 20180204
  Transmission Date: 20180509
  Serious: No
  Sender: FDA-Public Use
  Company Number: US-GLAXOSMITHKLINE-US2018016425

PATIENT
  Sex: Female

DRUGS (5)
  1. CHLORASEPTIC SORE THROAT [Concomitant]
     Active Substance: PHENOL
  2. ADVAIR DISKUS [Suspect]
     Active Substance: FLUTICASONE PROPIONATE\SALMETEROL XINAFOATE
     Indication: CHRONIC OBSTRUCTIVE PULMONARY DISEASE
     Dosage: 1 PUFF(S), BID
     Route: 055
  3. FUROSEMIDE. [Concomitant]
     Active Substance: FUROSEMIDE
  4. ACETAMINOPHEN. [Concomitant]
     Active Substance: ACETAMINOPHEN
  5. METOPROLOL SUCCINATE. [Concomitant]
     Active Substance: METOPROLOL SUCCINATE

REACTIONS (12)
  - Hyperaesthesia [Not Recovered/Not Resolved]
  - Cough [Not Recovered/Not Resolved]
  - Wrong technique in device usage process [Unknown]
  - Nasal congestion [Unknown]
  - Underdose [Unknown]
  - Oral mucosal blistering [Not Recovered/Not Resolved]
  - Oropharyngeal pain [Not Recovered/Not Resolved]
  - Headache [Not Recovered/Not Resolved]
  - Device use error [Unknown]
  - Ear pain [Not Recovered/Not Resolved]
  - Neck mass [Not Recovered/Not Resolved]
  - Influenza [Unknown]
